FAERS Safety Report 9463304 (Version 5)
Quarter: 2014Q2

REPORT INFORMATION
  Report Type: Report from Study
  Country: US (occurrence: US)
  Receive Date: 20130819
  Receipt Date: 20140602
  Transmission Date: 20141212
  Serious: Yes (Hospitalization)
  Sender: FDA-Public Use
  Company Number: US-BIOGENIDEC-2013BI076107

PATIENT
  Age: 58 Year
  Sex: Female
  Weight: 61 kg

DRUGS (16)
  1. TYSABRI [Suspect]
     Indication: MULTIPLE SCLEROSIS
     Route: 042
     Dates: start: 20110829
  2. TYSABRI [Suspect]
     Indication: MULTIPLE SCLEROSIS
     Route: 042
     Dates: start: 20080326, end: 20101123
  3. ACIPHEX [Concomitant]
     Route: 048
  4. AMLODIPINE [Concomitant]
     Route: 048
  5. ATORVASTATIN [Concomitant]
     Route: 048
  6. CHOLESTYRAMINE [Concomitant]
     Dates: start: 20130815
  7. CLARINEX [Concomitant]
  8. CYMBALTA [Concomitant]
  9. DILTIAZEM [Concomitant]
     Route: 048
     Dates: start: 20121210
  10. HYDROXYZINE [Concomitant]
  11. LORAZEPAM [Concomitant]
     Route: 048
  12. PRAVACHOL [Concomitant]
     Route: 048
  13. RITALIN [Concomitant]
     Route: 048
  14. SPIROLACTONE [Concomitant]
     Route: 048
  15. WELLBUTRIN [Concomitant]
     Route: 048
  16. ZYTREC [Concomitant]

REACTIONS (1)
  - Hernia repair [Recovered/Resolved]
